FAERS Safety Report 5452096-6 (Version None)
Quarter: 2007Q3

REPORT INFORMATION
  Report Type: 
  Country: None (occurrence: None)
  Receive Date: 20070818
  Receipt Date: 20070418
  Transmission Date: 20080115
  Serious: Yes (Other)
  Sender: FDA-Public Use
  Company Number: 2007SP007274

PATIENT
  Age: 67 Year
  Sex: Female
  Weight: 63.5036 kg

DRUGS (5)
  1. INTRON A [Suspect]
     Indication: MALIGNANT MELANOMA
     Dosage: 33 MIU;IV; 16 MIU; IV;  8 MIU; IV
     Route: 042
     Dates: start: 20070326, end: 20070330
  2. INTRON A [Suspect]
     Indication: MALIGNANT MELANOMA
     Dosage: 33 MIU;IV; 16 MIU; IV;  8 MIU; IV
     Route: 042
     Dates: start: 20070409, end: 20070413
  3. ENALAPRIL MALEATE [Concomitant]
  4. VERAPAMIL EXTENDED-RELEASE [Concomitant]
  5. VITAMIN [Concomitant]

REACTIONS (4)
  - ALANINE AMINOTRANSFERASE INCREASED [None]
  - ASPARTATE AMINOTRANSFERASE INCREASED [None]
  - BONE MARROW FAILURE [None]
  - NEUTROPENIA [None]
